FAERS Safety Report 6865661-6 (Version None)
Quarter: 2010Q3

REPORT INFORMATION
  Report Type: 
  Country: None (occurrence: None)
  Receive Date: 20100721
  Receipt Date: 20080430
  Transmission Date: 20110219
  Serious: No
  Sender: FDA-Public Use
  Company Number: US-PFIZER INC-2008037768

PATIENT
  Sex: Female

DRUGS (2)
  1. CHANTIX [Suspect]
  2. DEPAKOTE [Concomitant]
     Indication: EPILEPSY

REACTIONS (1)
  - FATIGUE [None]
